FAERS Safety Report 8295733-3 (Version None)
Quarter: 2012Q2

REPORT INFORMATION
  Report Type: 
  Country: None (occurrence: None)
  Receive Date: 20120418
  Receipt Date: 20120418
  Transmission Date: 20120825
  Serious: No
  Sender: FDA-Public Use
  Company Number: US-PFIZER INC-2012054221

PATIENT
  Sex: Female

DRUGS (2)
  1. PREMARIN [Suspect]
     Indication: HORMONE REPLACEMENT THERAPY
     Dosage: 0.625 MG, UNK
     Dates: start: 19900101
  2. PREMARIN [Suspect]
     Dosage: 0.625 MG, UNK

REACTIONS (2)
  - HOT FLUSH [None]
  - URINE ODOUR ABNORMAL [None]
